FAERS Safety Report 13371183 (Version 1)
Quarter: 2017Q1

REPORT INFORMATION
  Report Type: Report from Study
  Country: ES (occurrence: ES)
  Receive Date: 20170324
  Receipt Date: 20170324
  Transmission Date: 20170429
  Serious: Yes (Other)
  Sender: FDA-Public Use
  Company Number: ES-PFIZER INC-2003172276ES

PATIENT
  Age: 12 Year
  Sex: Male
  Weight: 45 kg

DRUGS (1)
  1. SOMATROPIN [Suspect]
     Active Substance: SOMATROPIN
     Dosage: 24 IU, WEEKLY
     Route: 058
     Dates: start: 19980416, end: 199808

REACTIONS (2)
  - Second primary malignancy [Unknown]
  - Osteosarcoma [Unknown]

NARRATIVE: CASE EVENT DATE: 199808
